FAERS Safety Report 6218502-4 (Version None)
Quarter: 2009Q2

REPORT INFORMATION
  Report Type: 
  Country: None (occurrence: None)
  Receive Date: 20090604
  Receipt Date: 20090604
  Transmission Date: 20091009
  Serious: Yes (Hospitalization)
  Sender: FDA-Public Use
  Company Number: None

PATIENT
  Age: 16 Year
  Sex: Male
  Weight: 63.5036 kg

DRUGS (2)
  1. KETAMINE HCL [Suspect]
     Indication: ANAESTHESIA PROCEDURE
     Dates: start: 20090210, end: 20090210
  2. KETAMINE HCL [Suspect]
     Indication: WISDOM TEETH REMOVAL
     Dates: start: 20090210, end: 20090210

REACTIONS (2)
  - CONVULSION [None]
  - POST PROCEDURAL COMPLICATION [None]
